FAERS Safety Report 12194795 (Version 1)
Quarter: 2016Q1

REPORT INFORMATION
  Report Type: Spontaneous
  Country: US (occurrence: None)
  Receive Date: 20160318
  Receipt Date: 20160318
  Transmission Date: 20160526
  Serious: No
  Sender: FDA-Public Use
  Company Number: None

PATIENT
  Age: 36 Year
  Sex: Female

DRUGS (1)
  1. ENTYVIO [Suspect]
     Active Substance: VEDOLIZUMAB
     Dosage: 300MG EVERY 8 WEEKS IV
     Route: 042
     Dates: start: 20160216, end: 20160303

REACTIONS (6)
  - Migraine [None]
  - Pyrexia [None]
  - Frequent bowel movements [None]
  - Abdominal pain [None]
  - Pruritus [None]
  - Rash [None]

NARRATIVE: CASE EVENT DATE: 20160216
